FAERS Safety Report 5376737-7 (Version None)
Quarter: 2007Q3

REPORT INFORMATION
  Report Type: 
  Country: None (occurrence: None)
  Receive Date: 20070703
  Receipt Date: 20070622
  Transmission Date: 20080115
  Serious: Yes (Other)
  Sender: FDA-Public Use
  Company Number: JP-PFIZER INC-2007050091

PATIENT
  Age: 67 Year
  Sex: Female

DRUGS (7)
  1. SOLANAX [Suspect]
     Route: 048
  2. TOFRANIL [Suspect]
     Route: 048
  3. TETRAMIDE [Concomitant]
  4. SEROQUEL [Concomitant]
  5. BROTIZOLAM [Concomitant]
  6. PURSENNID [Concomitant]
  7. AMOXAN [Concomitant]

REACTIONS (1)
  - ALOPECIA [None]
